FAERS Safety Report 10169676 (Version 5)
Quarter: 2014Q2

REPORT INFORMATION
  Report Type: Spontaneous
  Country: AU (occurrence: AU)
  Receive Date: 20140513
  Receipt Date: 20140626
  Transmission Date: 20141212
  Serious: Yes (Death, Life-Threatening, Hospitalization)
  Sender: FDA-Public Use
  Company Number: AU-PFIZER INC-2014128341

PATIENT
  Age: 58 Year
  Sex: Female
  Weight: 62 kg

DRUGS (3)
  1. XALKORI [Suspect]
     Indication: NON-SMALL CELL LUNG CANCER METASTATIC
     Dosage: 250 MG, 2X/DAY
     Route: 048
     Dates: start: 20140418, end: 20140508
  2. DEXAMETHASONE [Concomitant]
     Indication: METASTATIC PAIN
     Dosage: 4 MG, UNK
     Route: 048
  3. OXYCONTIN [Concomitant]
     Indication: PAIN

REACTIONS (2)
  - Haemorrhagic stroke [Fatal]
  - Hemiplegia [Not Recovered/Not Resolved]
